FAERS Safety Report 5451491-9 (Version None)
Quarter: 2007Q3

REPORT INFORMATION
  Report Type: 
  Country: None (occurrence: None)
  Receive Date: 20070913
  Receipt Date: 20070906
  Transmission Date: 20080115
  Serious: Yes (Other)
  Sender: FDA-Public Use
  Company Number: GB-ALLERGAN-0709622US

PATIENT
  Sex: Female

DRUGS (3)
  1. DYSPORT [Suspect]
     Indication: EYELID PTOSIS
     Dosage: 62.5 PG, SINGLE
     Route: 030
  2. DYSPORT [Suspect]
     Indication: ULCERATIVE KERATITIS
     Dosage: 62.5 PG, SINGLE
     Route: 030
  3. DYSPORT [Suspect]
     Indication: SCLERITIS

REACTIONS (4)
  - CORNEAL DEGENERATION [None]
  - CORNEAL PERFORATION [None]
  - DISEASE PROGRESSION [None]
  - TREATMENT FAILURE [None]
